FAERS Safety Report 10301689 (Version 1)
Quarter: 2014Q3

REPORT INFORMATION
  Report Type: Spontaneous
  Country: US (occurrence: None)
  Receive Date: 20140710
  Receipt Date: 20140710
  Transmission Date: 20150326
  Serious: Yes (Other)
  Sender: FDA-Public Use
  Company Number: None

PATIENT
  Age: 56 Year
  Sex: Male
  Weight: 77.11 kg

DRUGS (1)
  1. CITALOPRAM [Suspect]
     Active Substance: CITALOPRAM HYDROBROMIDE
     Dosage: 40 MG  1 TAB EVERY         BY MOUTH
     Route: 048
     Dates: start: 20110309

REACTIONS (6)
  - Decreased appetite [None]
  - Anxiety [None]
  - Crying [None]
  - Product substitution issue [None]
  - Poor quality sleep [None]
  - General physical health deterioration [None]

NARRATIVE: CASE EVENT DATE: 20140530
